FAERS Safety Report 6265769-2 (Version None)
Quarter: 2009Q3

REPORT INFORMATION
  Report Type: 
  Country: None (occurrence: None)
  Receive Date: 20090709
  Receipt Date: 20090709
  Transmission Date: 20100115
  Serious: No
  Sender: FDA-Public Use
  Company Number: None

PATIENT
  Sex: Female
  Weight: 96.1626 kg

DRUGS (1)
  1. DEPAKOTE [Suspect]
     Indication: SCHIZOAFFECTIVE DISORDER BIPOLAR TYPE
     Dates: start: 20090307, end: 20090311

REACTIONS (3)
  - DRUG INEFFECTIVE [None]
  - HYPOMANIA [None]
  - PRODUCT SUBSTITUTION ISSUE [None]
